FAERS Safety Report 12917743 (Version 4)
Quarter: 2016Q4

REPORT INFORMATION
  Report Type: Spontaneous
  Country: US (occurrence: US)
  Receive Date: 20161107
  Receipt Date: 20161216
  Transmission Date: 20170207
  Serious: No
  Sender: FDA-Public Use
  Company Number: US-PFIZER INC-2016514335

PATIENT
  Sex: Female

DRUGS (1)
  1. LYRICA [Suspect]
     Active Substance: PREGABALIN
     Dosage: UNK

REACTIONS (6)
  - Malaise [Unknown]
  - Impaired work ability [Unknown]
  - Influenza [Unknown]
  - Pain in extremity [Unknown]
  - Nerve injury [Unknown]
  - Hot flush [Unknown]
